FAERS Safety Report 10280185 (Version 1)
Quarter: 2014Q3

REPORT INFORMATION
  Report Type: Spontaneous
  Country: US (occurrence: None)
  Receive Date: 20140701
  Receipt Date: 20140701
  Transmission Date: 20150326
  Serious: Yes (Hospitalization)
  Sender: FDA-Public Use
  Company Number: None

PATIENT
  Age: 11 Year
  Sex: Female
  Weight: 49.44 kg

DRUGS (2)
  1. MONTELUKAST SOD 5MG ROXANE [Suspect]
     Active Substance: MONTELUKAST SODIUM
     Indication: ASTHMA
     Dosage: 1 TABLET AT BEDTIME TAKEN BY MOUTH
     Route: 048
     Dates: start: 20140621, end: 20140628
  2. MONTELUKAST SOD 5MG ROXANE [Suspect]
     Active Substance: MONTELUKAST SODIUM
     Dosage: 1 TABLET AT BEDTIME TAKEN BY MOUTH
     Route: 048
     Dates: start: 20140621, end: 20140628

REACTIONS (4)
  - Inappropriate affect [None]
  - Hallucination, auditory [None]
  - Crying [None]
  - Hallucination, visual [None]

NARRATIVE: CASE EVENT DATE: 20140628
